FAERS Safety Report 7492781-8 (Version None)
Quarter: 2011Q2

REPORT INFORMATION
  Report Type: 
  Country: None (occurrence: None)
  Receive Date: 20110519
  Receipt Date: 20110510
  Transmission Date: 20111010
  Serious: Yes (Life-Threatening, Hospitalization, Other)
  Sender: FDA-Public Use
  Company Number: CA-BAYER-2011-015135

PATIENT
  Age: 52 Year
  Sex: Female

DRUGS (6)
  1. REMICADE [Suspect]
     Dosage: 300 MG, UNK
     Route: 065
     Dates: start: 20100913
  2. AMOXICILLIN [Suspect]
     Indication: CYSTITIS
     Dosage: UNK
     Dates: start: 20100801
  3. REMICADE [Suspect]
     Indication: CROHN'S DISEASE
     Dosage: 300 MG, UNK
     Route: 042
     Dates: start: 20090701
  4. MACROBID [Suspect]
     Indication: CYSTITIS
     Dosage: UNK
     Dates: start: 20100801
  5. AVELOX [Suspect]
     Indication: CYSTITIS
     Dosage: UNK
     Dates: start: 20100801
  6. CODEINE SULFATE [Suspect]
     Indication: PRODUCT USED FOR UNKNOWN INDICATION
     Dosage: UNK
     Dates: start: 20100801

REACTIONS (9)
  - CROHN'S DISEASE [None]
  - DRUG INTERACTION [None]
  - DIZZINESS [None]
  - INCISION SITE ABSCESS [None]
  - ABDOMINAL DISTENSION [None]
  - BLADDER OPERATION [None]
  - ANAPHYLACTIC SHOCK [None]
  - DRUG HYPERSENSITIVITY [None]
  - ABDOMINAL DISCOMFORT [None]
